FAERS Safety Report 6287114-9 (Version None)
Quarter: 2009Q3

REPORT INFORMATION
  Report Type: 
  Country: None (occurrence: None)
  Receive Date: 20090724
  Receipt Date: 20090715
  Transmission Date: 20100115
  Serious: Yes (Other)
  Sender: FDA-Public Use
  Company Number: 2009SP016049

PATIENT
  Age: 28 Year
  Sex: Female
  Weight: 62 kg

DRUGS (3)
  1. MOMETASONE FUROATE [Suspect]
     Indication: ERYTHEMA
     Dosage: 50 GM;QW;TOP
     Route: 061
  2. MOMETASONE FUROATE [Suspect]
     Indication: PSORIASIS
     Dosage: 50 GM;QW;TOP
     Route: 061
  3. ACITRETIN [Suspect]
     Indication: PSORIASIS
     Dosage: 50 MG;QD; PO; 25 MG;QD;PO
     Route: 048

REACTIONS (11)
  - ABDOMINAL PAIN [None]
  - ASTHENIA [None]
  - BLOOD PRESSURE DIASTOLIC DECREASED [None]
  - CUSHING'S SYNDROME [None]
  - DECREASED APPETITE [None]
  - FATIGUE [None]
  - HYPERCHOLESTEROLAEMIA [None]
  - LEUKOCYTOSIS [None]
  - NAUSEA [None]
  - PYREXIA [None]
  - URINARY TRACT INFECTION [None]
